FAERS Safety Report 6482482-7 (Version None)
Quarter: 2009Q4

REPORT INFORMATION
  Report Type: 
  Country: None (occurrence: None)
  Receive Date: 20091208
  Receipt Date: 20090514
  Transmission Date: 20100525
  Serious: No
  Sender: FDA-Public Use
  Company Number: US-AMGEN-TCS347071

PATIENT
  Sex: Female

DRUGS (1)
  1. ENBREL [Suspect]
     Indication: PSORIATIC ARTHROPATHY
     Route: 058
     Dates: start: 20090409

REACTIONS (4)
  - CHAPPED LIPS [None]
  - DEHYDRATION [None]
  - DRY MOUTH [None]
  - URINE OUTPUT DECREASED [None]
